FAERS Safety Report 22611659 (Version 2)
Quarter: 2023Q2

REPORT INFORMATION
  Report Type: Spontaneous
  Country: US (occurrence: US)
  Receive Date: 20230616
  Receipt Date: 20230622
  Transmission Date: 20230721
  Serious: Yes (Hospitalization)
  Sender: FDA-Public Use
  Company Number: US-RIGEL Pharmaceuticals, INC-2023FOS000500

PATIENT
  Sex: Male

DRUGS (2)
  1. TAVALISSE [Suspect]
     Active Substance: FOSTAMATINIB
     Indication: Thrombocytopenia
     Dosage: 150 MG, BID
     Route: 048
     Dates: start: 20221111
  2. TAVALISSE [Suspect]
     Active Substance: FOSTAMATINIB
     Dosage: 150 MG, BID
     Route: 048

REACTIONS (6)
  - Infection [Unknown]
  - Contusion [Unknown]
  - Feeding disorder [Unknown]
  - Malaise [Unknown]
  - Abdominal pain [Unknown]
  - Drug ineffective [Unknown]
